FAERS Safety Report 10776305 (Version 1)
Quarter: 2015Q1

REPORT INFORMATION
  Report Type: Spontaneous
  Country: US (occurrence: None)
  Receive Date: 20150205
  Receipt Date: 20150205
  Transmission Date: 20150721
  Serious: Yes (Life-Threatening, Hospitalization)
  Sender: FDA-Public Use
  Company Number: None

PATIENT
  Age: 21 Year
  Sex: Female
  Weight: 45.5 kg

DRUGS (3)
  1. QUETIAPINE [Concomitant]
     Active Substance: QUETIAPINE
  2. CITALOPRAM [Concomitant]
     Active Substance: CITALOPRAM HYDROBROMIDE
  3. LAMOTRIGINE. [Suspect]
     Active Substance: LAMOTRIGINE
     Indication: AFFECTIVE DISORDER
     Dosage: ONE TABLET ONCE DAILY ORAL
     Route: 048
     Dates: start: 20141218, end: 20150101

REACTIONS (12)
  - Oropharyngeal pain [None]
  - Rash pruritic [None]
  - International normalised ratio increased [None]
  - Drug-induced liver injury [None]
  - Herpes simplex [None]
  - Vomiting [None]
  - Hepatitis [None]
  - Pyrexia [None]
  - Pain [None]
  - Rhinorrhoea [None]
  - Diarrhoea [None]
  - Pharyngitis streptococcal [None]

NARRATIVE: CASE EVENT DATE: 20150101
